FAERS Safety Report 5737919-5 (Version None)
Quarter: 2008Q2

REPORT INFORMATION
  Report Type: 
  Country: None (occurrence: None)
  Receive Date: 20080512
  Receipt Date: 20080512
  Transmission Date: 20081010
  Serious: Yes (Life-Threatening, Hospitalization)
  Sender: FDA-Public Use
  Company Number: None

PATIENT
  Sex: Male
  Weight: 76.4 kg

DRUGS (9)
  1. ERLOTINIB (GENENTECH) [Suspect]
     Indication: GLIOBLASTOMA
     Dosage: 150 MG DAILY PO
     Route: 048
     Dates: start: 20080314, end: 20080408
  2. RAPAMUNE [Suspect]
     Indication: GLIOBLASTOMA
     Dosage: 5MG DAILY PO
     Route: 048
     Dates: start: 20080314, end: 20080408
  3. LOTREL [Concomitant]
  4. ARICEPT [Concomitant]
  5. ISOSORBIDE DINITRATE [Concomitant]
  6. ASPIRIN [Concomitant]
  7. ATENOLOL [Concomitant]
  8. DEXAMETHASONE TAB [Concomitant]
  9. DEPAKOTE [Concomitant]

REACTIONS (11)
  - ABDOMINAL PAIN [None]
  - COLITIS [None]
  - CONVULSION [None]
  - DEEP VEIN THROMBOSIS [None]
  - DEPRESSED LEVEL OF CONSCIOUSNESS [None]
  - DIARRHOEA [None]
  - DIVERTICULITIS [None]
  - LOSS OF CONSCIOUSNESS [None]
  - PAIN [None]
  - PYREXIA [None]
  - THROMBOCYTOPENIA [None]
